FAERS Safety Report 4406287-3 (Version None)
Quarter: 2004Q3

REPORT INFORMATION
  Report Type: 
  Country: None (occurrence: None)
  Receive Date: 20040723
  Receipt Date: 20030608
  Transmission Date: 20050211
  Serious: No
  Sender: FDA-Public Use
  Company Number: US-GLAXOSMITHKLINE-A0411419A

PATIENT
  Age: 84 Year
  Sex: Female

DRUGS (3)
  1. AVANDIA [Suspect]
     Dosage: 4MG PER DAY
     Route: 048
     Dates: start: 20030606, end: 20030601
  2. GLUCOPHAGE [Concomitant]
     Dosage: 500MG TWICE PER DAY
  3. NADOLOL [Concomitant]

REACTIONS (10)
  - ANURIA [None]
  - DIZZINESS [None]
  - FATIGUE [None]
  - HEART RATE INCREASED [None]
  - HYPERTENSION [None]
  - MICTURITION DISORDER [None]
  - NAUSEA [None]
  - OEDEMA [None]
  - OEDEMA PERIPHERAL [None]
  - WEIGHT INCREASED [None]
